FAERS Safety Report 8143503-9 (Version None)
Quarter: 2012Q1

REPORT INFORMATION
  Report Type: 
  Country: None (occurrence: None)
  Receive Date: 20120217
  Receipt Date: 20120213
  Transmission Date: 20120608
  Serious: Yes (Death, Life-Threatening, Hospitalization, Other)
  Sender: FDA-Public Use
  Company Number: JP-BRISTOL-MYERS SQUIBB COMPANY-16076507

PATIENT
  Age: 73 Year
  Sex: Male
  Weight: 57 kg

DRUGS (5)
  1. ISOVORIN [Concomitant]
     Indication: RECTOSIGMOID CANCER
     Route: 041
     Dates: start: 20110310, end: 20110901
  2. FLUOROURACIL [Concomitant]
     Indication: RECTOSIGMOID CANCER
     Dosage: ALSO 3460MG/M2
     Route: 042
     Dates: start: 20110310, end: 20110902
  3. ERBITUX [Suspect]
     Indication: RECTOSIGMOID CANCER
     Dosage: ALSO 380MG FROM 10MAR-1SEP11.
     Route: 042
     Dates: start: 20110310, end: 20110901
  4. LEUCOVORIN CALCIUM [Concomitant]
     Indication: RECTOSIGMOID CANCER
     Route: 042
  5. OXALIPLATIN [Suspect]
     Indication: RECTOSIGMOID CANCER
     Dosage: ALSO IV DRIP 100 , 10MAR-1SEP11.
     Route: 042
     Dates: start: 20110310, end: 20110901

REACTIONS (4)
  - NEUROPATHY PERIPHERAL [None]
  - INTERSTITIAL LUNG DISEASE [None]
  - SKIN DISORDER [None]
  - STOMATITIS [None]
